FAERS Safety Report 19109547 (Version 1)
Quarter: 2021Q2

REPORT INFORMATION
  Report Type: Spontaneous
  Country: US (occurrence: US)
  Receive Date: 20210408
  Receipt Date: 20210408
  Transmission Date: 20210717
  Serious: No
  Sender: FDA-Public Use
  Company Number: US-EISAI MEDICAL RESEARCH-EC-2021-090390

PATIENT
  Sex: Female

DRUGS (2)
  1. KEYTRUDA [Concomitant]
     Active Substance: PEMBROLIZUMAB
     Indication: ENDOMETRIAL CANCER
     Dosage: DOSAGE AND FREQUENCY UNKNOWN
  2. LENVIMA [Suspect]
     Active Substance: LENVATINIB
     Indication: ENDOMETRIAL CANCER
     Dosage: DOSAGE AND FREQUENCY UNKNOWN
     Route: 048

REACTIONS (1)
  - Hallucination, visual [Not Recovered/Not Resolved]
